FAERS Safety Report 4682059-X (Version None)
Quarter: 2005Q2

REPORT INFORMATION
  Report Type: 
  Country: None (occurrence: None)
  Receive Date: 20050606
  Receipt Date: 20050422
  Transmission Date: 20051028
  Serious: Yes (Hospitalization)
  Sender: FDA-Public Use
  Company Number: US-BOEHRINGER INGELHEIM PHARMACEUTICALS, INC.-2005-BP-06621BP

PATIENT
  Age: 74 Year
  Sex: Male
  Weight: 125.45 kg

DRUGS (14)
  1. SPIRIVA [Suspect]
     Indication: CHRONIC OBSTRUCTIVE PULMONARY DISEASE
     Route: 055
     Dates: start: 20041201
  2. MAGNESIUM OXIDE [Concomitant]
  3. ZAROXOLYN [Concomitant]
  4. CARDIZEM [Concomitant]
  5. ZANTAC [Concomitant]
  6. KLONOPIN [Concomitant]
  7. COUMADIN [Concomitant]
  8. ALDACTONE [Concomitant]
  9. ZOCOR [Concomitant]
  10. QUININE [Concomitant]
     Indication: MUSCLE SPASMS
  11. XOPENEX [Concomitant]
  12. ALPHAGAN [Concomitant]
  13. LOTEMAX [Concomitant]
  14. TRAVATAN [Concomitant]
     Route: 031

REACTIONS (6)
  - CAROTID ARTERY OCCLUSION [None]
  - DRY MOUTH [None]
  - DYSGEUSIA [None]
  - DYSPNOEA [None]
  - ERYTHEMA [None]
  - FALL [None]
